FAERS Safety Report 7460478-6 (Version None)
Quarter: 2011Q2

REPORT INFORMATION
  Report Type: 
  Country: None (occurrence: None)
  Receive Date: 20110505
  Receipt Date: 20110502
  Transmission Date: 20111010
  Serious: Yes (Other)
  Sender: FDA-Public Use
  Company Number: JP-PFIZER INC-2011093393

PATIENT
  Sex: Male

DRUGS (1)
  1. LIPITOR [Suspect]
     Dosage: 10 MG, DAILY

REACTIONS (6)
  - MALAISE [None]
  - GASTROINTESTINAL DISORDER [None]
  - ASPARTATE AMINOTRANSFERASE INCREASED [None]
  - HEPATIC STEATOSIS [None]
  - ALANINE AMINOTRANSFERASE INCREASED [None]
  - EPISTAXIS [None]
